FAERS Safety Report 16735112 (Version 1)
Quarter: 2019Q3

REPORT INFORMATION
  Report Type: Spontaneous
  Country: US (occurrence: US)
  Receive Date: 20190823
  Receipt Date: 20190823
  Transmission Date: 20191005
  Serious: No
  Sender: FDA-Public Use
  Company Number: US-ELI_LILLY_AND_COMPANY-US201908010434

PATIENT
  Sex: Male

DRUGS (2)
  1. TRULICITY [Suspect]
     Active Substance: DULAGLUTIDE
     Indication: TYPE 2 DIABETES MELLITUS
     Dosage: 0.75 MG, WEEKLY (1/W)
     Route: 058
     Dates: start: 20190808
  2. STARLIX [Concomitant]
     Active Substance: NATEGLINIDE
     Indication: TYPE 2 DIABETES MELLITUS
     Dosage: UNK UNK, BID

REACTIONS (1)
  - Blood glucose increased [Unknown]

NARRATIVE: CASE EVENT DATE: 20190821
